FAERS Safety Report 16498052 (Version 1)
Quarter: 2019Q2

REPORT INFORMATION
  Report Type: Report from Study
  Country: US (occurrence: US)
  Receive Date: 20190628
  Receipt Date: 20190628
  Transmission Date: 20190711
  Serious: Yes (Hospitalization, Other)
  Sender: FDA-Public Use
  Company Number: US-MYLANLABS-2019M1059975

PATIENT

DRUGS (4)
  1. CYTARABINE. [Suspect]
     Active Substance: CYTARABINE
     Indication: ACUTE MYELOID LEUKAEMIA
     Dosage: ADMINISTERED WITHIN 30 DAYS PRIOR TO INITIATING AMINOCAPROIC ACID
     Route: 065
  2. AMINOCAPROIC ACID. [Suspect]
     Active Substance: AMINOCAPROIC ACID
     Indication: PROPHYLAXIS
     Route: 042
  3. ETOPOSIDE. [Suspect]
     Active Substance: ETOPOSIDE
     Indication: ACUTE MYELOID LEUKAEMIA
     Dosage: ADMINISTERED WITHIN 30 DAYS PRIOR TO INITIATING AMINOCAPROIC ACID
     Route: 065
  4. MITOXANTRONE [Suspect]
     Active Substance: MITOXANTRONE HYDROCHLORIDE
     Indication: ACUTE MYELOID LEUKAEMIA
     Dosage: ADMINISTERED WITHIN 30 DAYS PRIOR TO INITIATING AMINOCAPROIC ACID
     Route: 065

REACTIONS (1)
  - Deep vein thrombosis [Unknown]
